FAERS Safety Report 9685365 (Version 2)
Quarter: 2014Q1

REPORT INFORMATION
  Report Type: Report from Study
  Country: NL (occurrence: NL)
  Receive Date: 20131113
  Receipt Date: 20140122
  Transmission Date: 20141002
  Serious: Yes (Hospitalization)
  Sender: FDA-Public Use
  Company Number: PHHY2013NL128264

PATIENT
  Age: 75 Year
  Sex: Female

DRUGS (2)
  1. SANDOSTATIN LAR [Suspect]
     Indication: PANCREATIC NEUROENDOCRINE TUMOUR
     Dosage: 20 MG, ONCE PER 4 WEEKS
     Dates: start: 20110128
  2. SANDOSTATIN LAR [Suspect]
     Dosage: 20 MG, ONCE PER 4 WEEKS

REACTIONS (1)
  - Intestinal perforation [Unknown]
